APPROVED DRUG PRODUCT: NEOPAP
Active Ingredient: ACETAMINOPHEN
Strength: 120MG
Dosage Form/Route: SUPPOSITORY;RECTAL
Application: N016401 | Product #001
Applicant: POLYMEDICA INDUSTRIES INC
Approved: Approved Prior to Jan 1, 1982 | RLD: No | RS: No | Type: DISCN